FAERS Safety Report 5813650-2 (Version None)
Quarter: 2008Q3

REPORT INFORMATION
  Report Type: 
  Country: None (occurrence: None)
  Receive Date: 20080717
  Receipt Date: 20080716
  Transmission Date: 20090109
  Serious: Yes (Other)
  Sender: FDA-Public Use
  Company Number: A0737971A

PATIENT
  Age: 45 Year
  Sex: Male

DRUGS (4)
  1. AVANDIA [Suspect]
     Dosage: 4MG PER DAY
     Route: 048
     Dates: start: 20080501
  2. AVAPRO [Suspect]
     Dosage: 300MG PER DAY
     Dates: start: 20080501
  3. GLYBURIDE [Concomitant]
  4. DIURETIC [Concomitant]

REACTIONS (1)
  - PAPILLOEDEMA [None]
